FAERS Safety Report 6739904-3 (Version None)
Quarter: 2010Q2

REPORT INFORMATION
  Report Type: 
  Country: None (occurrence: None)
  Receive Date: 20100525
  Receipt Date: 20100513
  Transmission Date: 20101027
  Serious: Yes (Hospitalization)
  Sender: FDA-Public Use
  Company Number: GB-PFIZER INC-2010010132

PATIENT
  Age: 71 Year
  Sex: Female

DRUGS (2)
  1. SUNITINIB MALATE [Suspect]
     Indication: METASTATIC RENAL CELL CARCINOMA
     Dosage: 37.5 MG, CYCLIC
     Route: 048
     Dates: start: 20060825
  2. SUNITINIB MALATE [Suspect]
     Dosage: 50 MG, CYCLIC
     Route: 048
     Dates: start: 20051216, end: 20060824

REACTIONS (5)
  - DIARRHOEA [None]
  - RENAL FAILURE ACUTE [None]
  - SPLENIC ABSCESS [None]
  - SPLENIC CYST [None]
  - VOMITING [None]
